FAERS Safety Report 9043315 (Version 1)
Quarter: 2013Q1

REPORT INFORMATION
  Report Type: Report from Study
  Country: None (occurrence: US)
  Receive Date: 20130129
  Receipt Date: 20130129
  Transmission Date: 20140127
  Serious: No
  Sender: FDA-Public Use
  Company Number: US-ABBOTT-12P-163-0914428-00

PATIENT
  Age: 42 Year
  Sex: Female
  Weight: 79 kg

DRUGS (5)
  1. HUMIRA 40 MG/ 0.8 ML PRE-FILLED SYRINGE [Suspect]
     Indication: POLYCHONDRITIS
     Route: 058
     Dates: start: 20110824
  2. HUMIRA 40 MG/ 0.8 ML PRE-FILLED SYRINGE [Suspect]
     Indication: SCLERITIS
  3. PROZAC [Concomitant]
     Indication: ANXIETY
     Dosage: IN THE MORNING
     Route: 048
  4. KLONOPIN [Concomitant]
     Indication: PANIC ATTACK
     Dosage: AS REQUIRED
  5. PREDNISONE [Concomitant]
     Indication: EYE INFLAMMATION

REACTIONS (13)
  - Hypoaesthesia [Not Recovered/Not Resolved]
  - Injection site pain [Not Recovered/Not Resolved]
  - Hyperhidrosis [Not Recovered/Not Resolved]
  - Tremor [Not Recovered/Not Resolved]
  - Anxiety [Not Recovered/Not Resolved]
  - Injection site pain [Not Recovered/Not Resolved]
  - Wrong technique in drug usage process [Recovered/Resolved]
  - Dizziness [Recovered/Resolved]
  - Asthenia [Recovered/Resolved]
  - Chest pain [Recovered/Resolved]
  - Sensation of heaviness [Recovered/Resolved]
  - Product taste abnormal [Recovered/Resolved]
  - Off label use [Unknown]
